FAERS Safety Report 4608166-5 (Version None)
Quarter: 2005Q1

REPORT INFORMATION
  Report Type: 
  Country: None (occurrence: None)
  Receive Date: 20050303
  Receipt Date: 20050107
  Transmission Date: 20050727
  Serious: No
  Sender: FDA-Public Use
  Company Number: 2005BI000563

PATIENT
  Sex: Male

DRUGS (1)
  1. AMEVIVE [Suspect]
     Indication: VITILIGO
     Dosage: 15 MG;QW;IM
     Route: 030
     Dates: end: 20040701

REACTIONS (7)
  - ADVERSE DRUG REACTION [None]
  - BRONCHITIS [None]
  - COUGH [None]
  - FEELING HOT [None]
  - INCREASED VISCOSITY OF BRONCHIAL SECRETION [None]
  - PAIN [None]
  - SPUTUM DISCOLOURED [None]
